FAERS Safety Report 16086152 (Version 2)
Quarter: 2019Q2

REPORT INFORMATION
  Report Type: Spontaneous
  Country: ID (occurrence: ID)
  Receive Date: 20190318
  Receipt Date: 20190402
  Transmission Date: 20190711
  Serious: Yes (Death)
  Sender: FDA-Public Use
  Company Number: ID-PFIZER INC-2019115086

PATIENT
  Age: 76 Year

DRUGS (3)
  1. TYGACIL [Suspect]
     Active Substance: TIGECYCLINE
     Dosage: 100 MG, UNK
  2. SULPERAZON [Suspect]
     Active Substance: CEFOPERAZONE SODIUM\SULBACTAM SODIUM
     Dosage: 1 G, UNK
  3. MEROPENEM. [Suspect]
     Active Substance: MEROPENEM
     Dosage: UNK

REACTIONS (2)
  - Death [Fatal]
  - White blood cell count increased [Recovering/Resolving]
